FAERS Safety Report 7531851-2 (Version None)
Quarter: 2011Q2

REPORT INFORMATION
  Report Type: 
  Country: None (occurrence: None)
  Receive Date: 20110601
  Receipt Date: 20110519
  Transmission Date: 20111010
  Serious: Yes (Hospitalization)
  Sender: FDA-Public Use
  Company Number: 2011-00551

PATIENT
  Age: 60 Year
  Sex: Male
  Weight: 63.05 kg

DRUGS (13)
  1. FAMOTIDINE [Concomitant]
  2. PLACEBO CAPSULE [Suspect]
     Indication: HEPATITIS C
     Dosage: 150 MG (150 MG, 1 IN 1 D), ORAL
     Route: 048
     Dates: start: 20110307
  3. PLACEBO CAPSULE [Suspect]
     Indication: HEPATITIS C
     Dosage: 150 MG (150 MG, 1 IN 1 D), ORAL
     Route: 048
     Dates: start: 20110321
  4. DIOVAN [Suspect]
     Indication: HYPERTENSION
     Dosage: 45.7143 MG (320 MG, 1 IN 1 WK), ORAL; 22.8571 MG (160 MG, 1 IN 1 WK), ORAL
     Route: 048
     Dates: start: 20110323
  5. DIOVAN [Suspect]
     Indication: HYPERTENSION
     Dosage: 45.7143 MG (320 MG, 1 IN 1 WK), ORAL; 22.8571 MG (160 MG, 1 IN 1 WK), ORAL
     Route: 048
     Dates: start: 20110201
  6. TMC435-BLINDED (TMC435) CAPSULE [Suspect]
     Indication: HEPATITIS C
     Dosage: 150 MG (150 MG, 1 IN 1 D), ORAL
     Route: 048
     Dates: start: 20110307, end: 20110319
  7. TMC435-BLINDED (TMC435) CAPSULE [Suspect]
     Indication: HEPATITIS C
     Dosage: 150 MG (150 MG, 1 IN 1 D), ORAL
     Route: 048
     Dates: start: 20110321
  8. COPEGUS (RIBAVIRIN, TMC435 NON-COMPANY IMP) TABLET [Suspect]
     Indication: HEPATITIS C
     Dosage: 400 MG (200 MG, 2 IN 1 D), ORAL; ORAL
     Route: 048
     Dates: start: 20110321
  9. COPEGUS (RIBAVIRIN, TMC435 NON-COMPANY IMP) TABLET [Suspect]
     Indication: HEPATITIS C
     Dosage: 400 MG (200 MG, 2 IN 1 D), ORAL; ORAL
     Route: 048
     Dates: start: 20110307, end: 20110319
  10. ZOLPIDEM (UNKNOWN) [Concomitant]
  11. AMLODIPINE BESYLATE [Suspect]
     Indication: HYPERTENSION
     Dosage: 10 MG (10 MG, 1 IN 1 D),
     Dates: start: 20110125
  12. PEGASYS [Suspect]
     Indication: HEPATITIS C
     Dosage: 25.7143 MCG (180 MCG, 1 IN 1 WK), SUBCUTANEOUS
     Route: 058
     Dates: start: 20110307
  13. MORPHINE SULFATE (KADIAN) (UNKNOWN) [Concomitant]

REACTIONS (5)
  - ACUTE PRERENAL FAILURE [None]
  - DEHYDRATION [None]
  - SYNCOPE [None]
  - HYPOTENSION [None]
  - ALTERED STATE OF CONSCIOUSNESS [None]
